FAERS Safety Report 9937170 (Version 2)
Quarter: 2014Q1

REPORT INFORMATION
  Report Type: Spontaneous
  Country: JP (occurrence: JP)
  Receive Date: 20140301
  Receipt Date: 20140317
  Transmission Date: 20141002
  Serious: Yes (Life-Threatening, Hospitalization, Disabling)
  Sender: FDA-Public Use
  Company Number: JP-ASTRAZENECA-2014SE14479

PATIENT
  Sex: Male

DRUGS (3)
  1. CASODEX [Suspect]
     Indication: PROSTATE CANCER
     Route: 048
     Dates: start: 201401
  2. ZOLADEX [Suspect]
     Indication: PROSTATE CANCER
     Route: 058
     Dates: start: 201401
  3. OTHER AGENTS AFFECTING CENTRAL NERVOUS SYSTEM [Concomitant]
     Indication: DEMENTIA ALZHEIMER^S TYPE
     Dosage: DOSE UNKNOWN, FOR NEARLY 10 YEARS
     Route: 065

REACTIONS (3)
  - Dementia Alzheimer^s type [Unknown]
  - Interstitial lung disease [Recovered/Resolved]
  - Dizziness [Unknown]
